FAERS Safety Report 11091138 (Version 1)
Quarter: 2015Q2

REPORT INFORMATION
  Report Type: Spontaneous
  Country: PT (occurrence: PT)
  Receive Date: 20150505
  Receipt Date: 20150505
  Transmission Date: 20150821
  Serious: Yes (Hospitalization, Other)
  Sender: FDA-Public Use
  Company Number: PT-ACTAVIS-2015-09229

PATIENT
  Age: 56 Year
  Sex: Male

DRUGS (1)
  1. ALENDRONATE SODIUM- (UNKNOWN) [Suspect]
     Active Substance: ALENDRONATE SODIUM
     Indication: OSTEOARTHROPATHY
     Dosage: 10 MG, DAILY
     Route: 065

REACTIONS (3)
  - Dysphagia [Recovered/Resolved]
  - Gastrointestinal mucosal exfoliation [Recovering/Resolving]
  - Chest pain [Recovering/Resolving]
